FAERS Safety Report 17359662 (Version 1)
Quarter: 2020Q1

REPORT INFORMATION
  Report Type: Spontaneous
  Country: AT (occurrence: AT)
  Receive Date: 20200203
  Receipt Date: 20200203
  Transmission Date: 20200409
  Serious: Yes (Other)
  Sender: FDA-Public Use
  Company Number: AT-SA-2020SA025823

PATIENT
  Age: 25 Year
  Sex: Female

DRUGS (1)
  1. ACETYLSALICYLIC ACID/CAFFEINE/PARACETAMOL [Suspect]
     Active Substance: ACETAMINOPHEN\ASPIRIN\CAFFEINE

REACTIONS (1)
  - Drug abuse [Unknown]
